FAERS Safety Report 14910152 (Version 3)
Quarter: 2020Q3

REPORT INFORMATION
  Report Type: Report from Study
  Country: CN (occurrence: CN)
  Receive Date: 20180517
  Receipt Date: 20181221
  Transmission Date: 20201104
  Serious: Yes (Hospitalization)
  Sender: FDA-Public Use
  Company Number: CN-ASTRAZENECA-2018SE62527

PATIENT
  Age: 48 Year
  Sex: Male

DRUGS (9)
  1. MEDI4736 [Suspect]
     Active Substance: DURVALUMAB
     Indication: HEPATOCELLULAR CARCINOMA
     Route: 042
     Dates: start: 20180124
  2. TREMELIMUMAB. [Suspect]
     Active Substance: TREMELIMUMAB
     Indication: HEPATOCELLULAR CARCINOMA
     Route: 042
     Dates: start: 20180124
  3. TREMELIMUMAB. [Suspect]
     Active Substance: TREMELIMUMAB
     Indication: HEPATOCELLULAR CARCINOMA
     Route: 042
     Dates: start: 20180224
  4. MEDI4736 [Suspect]
     Active Substance: DURVALUMAB
     Indication: HEPATOCELLULAR CARCINOMA
     Route: 042
     Dates: start: 20180224
  5. MEDI4736 [Suspect]
     Active Substance: DURVALUMAB
     Indication: HEPATOCELLULAR CARCINOMA
     Route: 042
     Dates: start: 20180321
  6. TREMELIMUMAB. [Suspect]
     Active Substance: TREMELIMUMAB
     Indication: HEPATOCELLULAR CARCINOMA
     Route: 042
     Dates: start: 20180418
  7. ENTECAVIR. [Concomitant]
     Active Substance: ENTECAVIR
     Indication: ANTIVIRAL TREATMENT
     Route: 048
     Dates: start: 201603
  8. MEDI4736 [Suspect]
     Active Substance: DURVALUMAB
     Indication: HEPATOCELLULAR CARCINOMA
     Route: 042
     Dates: start: 20180418
  9. TREMELIMUMAB. [Suspect]
     Active Substance: TREMELIMUMAB
     Indication: HEPATOCELLULAR CARCINOMA
     Route: 042
     Dates: start: 20180321

REACTIONS (1)
  - Hepatic function abnormal [Recovered/Resolved]

NARRATIVE: CASE EVENT DATE: 20180509
